FAERS Safety Report 17644560 (Version 3)
Quarter: 2020Q2

REPORT INFORMATION
  Report Type: Spontaneous
  Country: US (occurrence: US)
  Receive Date: 20200408
  Receipt Date: 20200522
  Transmission Date: 20200713
  Serious: Yes (Other)
  Sender: FDA-Public Use
  Company Number: US-BAYER-2020-055187

PATIENT
  Age: 29 Year
  Sex: Female
  Weight: 96.62 kg

DRUGS (8)
  1. DIFLUCAN [Concomitant]
     Active Substance: FLUCONAZOLE
     Dosage: 1 TABLET ORALLY ONCE A DAY
     Route: 048
  2. TERCONAZOLE. [Concomitant]
     Active Substance: TERCONAZOLE
     Dosage: 1 APPLICATORFUL AT BEDTIME VAGINAL ONCE A DAY
     Route: 067
  3. MIRENA [Suspect]
     Active Substance: LEVONORGESTREL
     Indication: CONTRACEPTION
     Dosage: 20 ?G PER DAY, CONT
     Route: 015
     Dates: start: 20190426, end: 20200420
  4. MISOPROSTOL. [Concomitant]
     Active Substance: MISOPROSTOL
     Dosage: 2 TABLET ORALLY AT BEDTIME
  5. MOTRIN [Concomitant]
     Active Substance: IBUPROFEN
     Dosage: 1 TABLET WITH FOOD OR MILK ORALLY THREE TIMES A DAY
     Route: 048
  6. SLYND [Concomitant]
     Active Substance: DROSPIRENONE
     Dosage: 1 TABLET ORALLY ONCE A DAY
  7. AZITHROMYCIN ANHYDROUS. [Concomitant]
     Active Substance: AZITHROMYCIN ANHYDROUS
     Dosage: 2 TABLETS ON THE FIRST DAY, THEN 1 TABLET DAILY FOR 4 DAYS ORALLY ONCE A DAY
     Route: 048
  8. CLONAZEPAM. [Concomitant]
     Active Substance: CLONAZEPAM

REACTIONS (3)
  - Embedded device [Recovered/Resolved]
  - Contraindicated device used [None]
  - Medical device monitoring error [None]

NARRATIVE: CASE EVENT DATE: 20191030
